FAERS Safety Report 7534244-7 (Version None)
Quarter: 2011Q2

REPORT INFORMATION
  Report Type: 
  Country: None (occurrence: None)
  Receive Date: 20110608
  Receipt Date: 20061229
  Transmission Date: 20111010
  Serious: Yes (Death, Other)
  Sender: FDA-Public Use
  Company Number: PHHO2006IN14734

PATIENT
  Sex: Female
  Weight: 1.5 kg

DRUGS (1)
  1. GLEEVEC [Suspect]
     Dosage: 400 MG, PER DAY
     Route: 064

REACTIONS (4)
  - PNEUMONITIS [None]
  - BREECH DELIVERY [None]
  - PREMATURE BABY [None]
  - DRUG EXPOSURE DURING PREGNANCY [None]
